FAERS Safety Report 5216626-1 (Version None)
Quarter: 2007Q1

REPORT INFORMATION
  Report Type: 
  Country: None (occurrence: None)
  Receive Date: 20061130
  Receipt Date: 20060418
  Transmission Date: 20070707
  Serious: Yes (Hospitalization)
  Sender: FDA-Public Use
  Company Number: US200604004389

PATIENT
  Sex: Male
  Weight: 90.7 kg

DRUGS (1)
  1. ZYPREXA [Suspect]
     Dates: start: 20010209, end: 20020210

REACTIONS (7)
  - BLOOD CHOLESTEROL [None]
  - BLOOD TRIGLYCERIDES INCREASED [None]
  - DIABETES MELLITUS [None]
  - GLYCOSURIA [None]
  - HYPERGLYCAEMIA [None]
  - HYPERTENSION [None]
  - HYPOGLYCAEMIA [None]
